FAERS Safety Report 17836623 (Version 1)
Quarter: 2020Q2

REPORT INFORMATION
  Report Type: Spontaneous
  Country: US (occurrence: US)
  Receive Date: 20200528
  Receipt Date: 20200528
  Transmission Date: 20200714
  Serious: Yes (Other)
  Sender: FDA-Public Use
  Company Number: US-NOVOPROD-730011

PATIENT
  Sex: Female
  Weight: 108.86 kg

DRUGS (2)
  1. HUMALOG [Suspect]
     Active Substance: INSULIN LISPRO
     Indication: TYPE 2 DIABETES MELLITUS
     Dosage: 100 IU
     Route: 065
     Dates: start: 2014, end: 2019
  2. LEVEMIR [Suspect]
     Active Substance: INSULIN DETEMIR
     Indication: TYPE 2 DIABETES MELLITUS
     Dosage: 60 IU, BID
     Route: 058
     Dates: start: 2015, end: 2019

REACTIONS (4)
  - Blood glucose increased [Recovered/Resolved]
  - Caesarean section [Unknown]
  - Maternal exposure during pregnancy [Recovered/Resolved]
  - Drug ineffective [Unknown]

NARRATIVE: CASE EVENT DATE: 2015
